FAERS Safety Report 8057113-5 (Version None)
Quarter: 2012Q1

REPORT INFORMATION
  Report Type: 
  Country: None (occurrence: None)
  Receive Date: 20120119
  Receipt Date: 20120113
  Transmission Date: 20120608
  Serious: Yes (Other)
  Sender: FDA-Public Use
  Company Number: TN-PFIZER INC-2012010899

PATIENT
  Age: 39 Year
  Sex: Female

DRUGS (1)
  1. FOSPHENYTOIN SODIUM [Suspect]
     Indication: CONVULSION PROPHYLAXIS
     Dosage: 3750 MG (45 MG/KG)

REACTIONS (6)
  - ACCIDENTAL OVERDOSE [None]
  - POISONING [None]
  - ALTERED STATE OF CONSCIOUSNESS [None]
  - NYSTAGMUS [None]
  - VESTIBULAR DISORDER [None]
  - DYSPNOEA [None]
